FAERS Safety Report 8453456-1 (Version None)
Quarter: 2012Q2

REPORT INFORMATION
  Report Type: 
  Country: None (occurrence: None)
  Receive Date: 20120620
  Receipt Date: 20120518
  Transmission Date: 20120825
  Serious: No
  Sender: FDA-Public Use
  Company Number: US-VERTEX PHARMACEUTICALS INC.-AE-2012-007393

PATIENT
  Sex: Female
  Weight: 83.99 kg

DRUGS (4)
  1. RIBAVIRIN [Concomitant]
     Indication: HEPATITIS C
     Dates: start: 20110730, end: 20111001
  2. INCIVEK [Suspect]
     Indication: HEPATITIS C
     Route: 048
     Dates: start: 20110730, end: 20111026
  3. RIBAVIRIN [Concomitant]
     Dates: start: 20111001, end: 20111026
  4. PEGASYS [Concomitant]
     Indication: HEPATITIS C
     Route: 058
     Dates: start: 20110730, end: 20111026

REACTIONS (6)
  - DIARRHOEA [None]
  - VIRAL LOAD INCREASED [None]
  - ANAEMIA [None]
  - RASH PRURITIC [None]
  - ANORECTAL DISCOMFORT [None]
  - ALOPECIA [None]
